FAERS Safety Report 22178691 (Version 1)
Quarter: 2023Q2

REPORT INFORMATION
  Report Type: Spontaneous
  Country: FR (occurrence: FR)
  Receive Date: 20230405
  Receipt Date: 20230405
  Transmission Date: 20230722
  Serious: Yes (Other)
  Sender: FDA-Public Use
  Company Number: FR-VIIV HEALTHCARE LIMITED-FR2022EME067155

PATIENT
  Age: 36 Year
  Sex: Female
  Weight: 98 kg

DRUGS (5)
  1. PREZISTA [Suspect]
     Active Substance: DARUNAVIR ETHANOLATE
     Indication: HIV infection
     Dosage: 800 MG, QD
     Route: 065
     Dates: start: 20220415, end: 20221013
  2. EDURANT [Suspect]
     Active Substance: RILPIVIRINE HYDROCHLORIDE
     Indication: HIV infection
     Dosage: 1 DF, QD, 25 MG TABLET X1/DAY
     Route: 048
     Dates: start: 20200726, end: 20220415
  3. TIVICAY [Suspect]
     Active Substance: DOLUTEGRAVIR SODIUM
     Indication: HIV infection
     Dosage: 1 DF, QD, 50 MG TABLET X1/DAY
     Route: 048
     Dates: start: 20200726, end: 20220415
  4. TRUVADA [Suspect]
     Active Substance: EMTRICITABINE\TENOFOVIR DISOPROXIL FUMARATE
     Indication: HIV infection
     Dosage: 1 DF, QD
     Route: 065
     Dates: start: 20220415, end: 20221013
  5. RITONAVIR [Suspect]
     Active Substance: RITONAVIR
     Indication: HIV infection
     Dosage: 100 MG, QD
     Route: 065
     Dates: start: 20220415, end: 20221013

REACTIONS (4)
  - Gestational diabetes [Unknown]
  - Live birth [Unknown]
  - Genital herpes [Unknown]
  - Exposure during pregnancy [Unknown]

NARRATIVE: CASE EVENT DATE: 20220101
